FAERS Safety Report 8954929 (Version 1)
Quarter: 2012Q4

REPORT INFORMATION
  Report Type: 
  Country: FR (occurrence: FR)
  Receive Date: 20121207
  Receipt Date: 20121207
  Transmission Date: 20130627
  Serious: Yes (Other)
  Sender: FDA-Public Use
  Company Number: FR-ASTRAZENECA-2012SE90375

PATIENT
  Age: 22259 Day
  Sex: Male

DRUGS (8)
  1. TENORMINE [Suspect]
     Route: 048
     Dates: start: 20120927, end: 20121010
  2. PERINDOPRIL [Suspect]
     Route: 048
     Dates: start: 20120927, end: 20121010
  3. KARDEGIC [Concomitant]
     Route: 048
     Dates: start: 20120927
  4. INEXIUM [Concomitant]
  5. NICOPATCH [Concomitant]
     Dates: start: 20120927
  6. TAHOR [Concomitant]
  7. LOVENOX [Concomitant]
     Route: 048
     Dates: start: 20120927, end: 20121001
  8. EFIENT [Concomitant]
     Dates: start: 20120927, end: 20121002

REACTIONS (1)
  - Toxic skin eruption [Recovered/Resolved]
